FAERS Safety Report 24431115 (Version 2)
Quarter: 2024Q4

REPORT INFORMATION
  Report Type: Spontaneous
  Country: US (occurrence: US)
  Receive Date: 20241014
  Receipt Date: 20241025
  Transmission Date: 20250115
  Serious: Yes (Hospitalization, Other)
  Sender: AUROBINDO
  Company Number: US-MLMSERVICE-20240923-PI203749-00142-1

PATIENT
  Age: 50 Year
  Sex: Male

DRUGS (2)
  1. FAMOTIDINE [Suspect]
     Active Substance: FAMOTIDINE
     Indication: Product used for unknown indication
     Dosage: UNK
     Route: 065
  2. QUETIAPINE [Suspect]
     Active Substance: QUETIAPINE
     Indication: Product used for unknown indication
     Dosage: UNK (CHRONIC USE)
     Route: 065

REACTIONS (11)
  - Pneumonia [Unknown]
  - Salmonella bacteraemia [Unknown]
  - Gastroenteritis salmonella [Unknown]
  - Empyema [Unknown]
  - Pleural effusion [Unknown]
  - Pyrexia [Unknown]
  - Productive cough [Unknown]
  - Hypoxia [Unknown]
  - Tachypnoea [Unknown]
  - Dyspnoea [Unknown]
  - Hyponatraemia [Unknown]
